FAERS Safety Report 12464499 (Version 4)
Quarter: 2016Q4

REPORT INFORMATION
  Report Type: Report from Study
  Country: AU (occurrence: AU)
  Receive Date: 20160614
  Receipt Date: 20161222
  Transmission Date: 20170207
  Serious: Yes (Hospitalization, Other)
  Sender: FDA-Public Use
  Company Number: AU-ALEXION-A201501068

PATIENT
  Age: 4 Year
  Sex: Female
  Weight: 12.8 kg

DRUGS (4)
  1. PYRIDOXINE [Concomitant]
     Active Substance: PYRIDOXINE
     Indication: PRODUCT USED FOR UNKNOWN INDICATION
     Dosage: UNK
     Route: 065
  2. ENB-0040 [Suspect]
     Active Substance: ASFOTASE ALFA
     Indication: HYPOPHOSPHATASIA
     Dosage: UNK UNK, SIX TIMES/WEEK
     Route: 058
     Dates: start: 2011
  3. ENB-0040 [Suspect]
     Active Substance: ASFOTASE ALFA
     Dosage: 2 MG/KG, TIW
     Route: 058
     Dates: end: 201504
  4. ENB-0040 [Suspect]
     Active Substance: ASFOTASE ALFA
     Dosage: 1 MG/KG, SIX TIMES/WEEK
     Route: 058
     Dates: start: 201504

REACTIONS (3)
  - Bronchiolitis [Recovered/Resolved]
  - Craniosynostosis [Recovering/Resolving]
  - Injection site calcification [Recovering/Resolving]

NARRATIVE: CASE EVENT DATE: 201109
